FAERS Safety Report 26130616 (Version 1)
Quarter: 2025Q4

REPORT INFORMATION
  Report Type: Spontaneous
  Country: RU (occurrence: RU)
  Receive Date: 20251208
  Receipt Date: 20251208
  Transmission Date: 20260117
  Serious: Yes (Other)
  Sender: BAYER HEALTHCARE PHARMACEUTICALS INC.
  Company Number: RU-BAYER-2025A161159

PATIENT
  Sex: Female

DRUGS (1)
  1. DROSPIRENONE\ESTRADIOL [Suspect]
     Active Substance: DROSPIRENONE\ESTRADIOL
     Route: 048

REACTIONS (3)
  - Angina pectoris [None]
  - Blood pressure fluctuation [None]
  - Product availability issue [None]
